FAERS Safety Report 7805329-2 (Version None)
Quarter: 2011Q4

REPORT INFORMATION
  Report Type: 
  Country: None (occurrence: None)
  Receive Date: 20111010
  Receipt Date: 20110624
  Transmission Date: 20120403
  Serious: Yes (Other)
  Sender: FDA-Public Use
  Company Number: BE-ABBOTT-11P-013-0732695-00

PATIENT
  Age: 60 Year
  Sex: Female

DRUGS (2)
  1. TEMOZOLOMIDE [Concomitant]
     Indication: PRODUCT USED FOR UNKNOWN INDICATION
  2. DEPAKENE [Suspect]
     Indication: BRAIN NEOPLASM
     Route: 042

REACTIONS (2)
  - THROMBOCYTOPENIA [None]
  - HAEMORRHAGE [None]
